FAERS Safety Report 9890516 (Version 1)
Quarter: 2014Q1

REPORT INFORMATION
  Report Type: Spontaneous
  Country: US (occurrence: None)
  Receive Date: 20140207
  Receipt Date: 20140207
  Transmission Date: 20141002
  Serious: Yes (Death)
  Sender: FDA-Public Use
  Company Number: SYM-2014-16488

PATIENT
  Age: 47 Year
  Sex: Female

DRUGS (4)
  1. DIAZEPAM [Suspect]
     Route: 048
  2. ACETAMINOPHEN [Suspect]
     Route: 048
  3. CLONAZEPAM [Suspect]
     Route: 048
  4. ACETAMINOPHEN/BUTABITAL/CAFFEINE/CODEINE [Suspect]
     Route: 048

REACTIONS (3)
  - Poisoning [None]
  - Completed suicide [None]
  - Exposure via ingestion [None]
